FAERS Safety Report 7180188-2 (Version None)
Quarter: 2010Q4

REPORT INFORMATION
  Report Type: 
  Country: None (occurrence: None)
  Receive Date: 20101221
  Receipt Date: 20101206
  Transmission Date: 20110411
  Serious: Yes (Other)
  Sender: FDA-Public Use
  Company Number: DE-GILEAD-2010-0034504

PATIENT
  Sex: Female

DRUGS (1)
  1. RANEXA [Suspect]
     Route: 048
     Dates: start: 20100101, end: 20100101

REACTIONS (1)
  - LEUKOCYTOCLASTIC VASCULITIS [None]
